FAERS Safety Report 7903619-6 (Version None)
Quarter: 2011Q4

REPORT INFORMATION
  Report Type: 
  Country: None (occurrence: None)
  Receive Date: 20111109
  Receipt Date: 20111026
  Transmission Date: 20120403
  Serious: Yes (Hospitalization, Other)
  Sender: FDA-Public Use
  Company Number: US-AMGEN-QUU348020

PATIENT
  Age: 30 Year
  Sex: Female
  Weight: 59 kg

DRUGS (4)
  1. FLUTICASONE PROPIONATE [Concomitant]
     Dosage: 110 MUG, UNK
  2. ENBREL [Suspect]
     Indication: ANKYLOSING SPONDYLITIS
     Dosage: 25 MG, QWK
     Route: 058
     Dates: start: 20030101
  3. ACYCLOVIR [Concomitant]
     Dosage: 200 MG, UNK
  4. ALBUTEROL SULFATE [Concomitant]
     Dosage: 90 MUG, UNK

REACTIONS (2)
  - LABOUR COMPLICATION [None]
  - FOETAL HEART RATE ABNORMAL [None]
